FAERS Safety Report 6143788-4 (Version None)
Quarter: 2009Q2

REPORT INFORMATION
  Report Type: 
  Country: None (occurrence: None)
  Receive Date: 20090403
  Receipt Date: 20090326
  Transmission Date: 20091009
  Serious: Yes (Other)
  Sender: FDA-Public Use
  Company Number: PHHY2009NL11619

PATIENT
  Sex: Male
  Weight: 102 kg

DRUGS (5)
  1. NEORAL [Suspect]
     Indication: RENAL TRANSPLANT
     Dosage: 75 MG, BID
     Dates: start: 19940612
  2. NEORAL [Suspect]
     Dosage: 100 MG, BID
  3. PREDNISOLONE [Suspect]
     Indication: RENAL TRANSPLANT
     Dosage: 10 MG/DAY
     Dates: start: 19940612
  4. LIPITOR [Concomitant]
     Dosage: 20 MG
     Dates: start: 19940620
  5. DESURIC [Concomitant]
     Dosage: 100 MG
     Dates: start: 19960101

REACTIONS (4)
  - EYE HAEMORRHAGE [None]
  - LOCAL SWELLING [None]
  - MUSCULOSKELETAL PAIN [None]
  - NEURALGIA [None]
